FAERS Safety Report 7887833-4 (Version None)
Quarter: 2011Q4

REPORT INFORMATION
  Report Type: 
  Country: None (occurrence: None)
  Receive Date: 20111102
  Receipt Date: 20111102
  Transmission Date: 20120403
  Serious: Yes (Hospitalization)
  Sender: FDA-Public Use
  Company Number: None

PATIENT
  Age: 74 Year
  Sex: Female
  Weight: 53.6 kg

DRUGS (13)
  1. LIPITOR [Concomitant]
  2. SYNTHROID [Concomitant]
  3. DECITABINE [Suspect]
     Indication: MYELODYSPLASTIC SYNDROME
     Dosage: DECITABINE 10.48MG SQ
     Route: 058
     Dates: start: 20111006
  4. DECITABINE [Suspect]
     Indication: MYELODYSPLASTIC SYNDROME
     Dosage: DECITABINE 10.48MG SQ
     Route: 058
     Dates: start: 20111003
  5. DECITABINE [Suspect]
     Indication: MYELODYSPLASTIC SYNDROME
     Dosage: DECITABINE 10.48MG SQ
     Route: 058
     Dates: start: 20111010
  6. DECITABINE [Suspect]
     Indication: MYELODYSPLASTIC SYNDROME
     Dosage: DECITABINE 10.48MG SQ
     Route: 058
     Dates: start: 20111013
  7. DECITABINE [Suspect]
     Indication: MYELODYSPLASTIC SYNDROME
     Dosage: DECITABINE 10.48MG SQ
     Route: 058
     Dates: start: 20110930
  8. DECITABINE [Suspect]
     Indication: MYELODYSPLASTIC SYNDROME
     Dosage: DECITABINE 10.48MG SQ
     Route: 058
     Dates: start: 20110928
  9. DECITABINE [Suspect]
     Indication: MYELODYSPLASTIC SYNDROME
     Dosage: DECITABINE 10.48MG SQ
     Route: 058
     Dates: start: 20111020
  10. DECITABINE [Suspect]
     Indication: MYELODYSPLASTIC SYNDROME
     Dosage: DECITABINE 10.48MG SQ
     Route: 058
     Dates: start: 20111017
  11. PAXIL [Concomitant]
  12. XANAX [Concomitant]
  13. CIPROFLOXACIN [Concomitant]

REACTIONS (4)
  - BALANCE DISORDER [None]
  - FALL [None]
  - UNEVALUABLE EVENT [None]
  - NEUTROPHIL COUNT DECREASED [None]
